FAERS Safety Report 6550141-8 (Version None)
Quarter: 2010Q1

REPORT INFORMATION
  Report Type: 
  Country: None (occurrence: None)
  Receive Date: 20100125
  Receipt Date: 20100112
  Transmission Date: 20100710
  Serious: Yes (Death)
  Sender: FDA-Public Use
  Company Number: TR-SANOFI-AVENTIS-2010SA002241

PATIENT
  Sex: Male
  Weight: 75 kg

DRUGS (4)
  1. LANTUS [Suspect]
     Indication: DIABETES MELLITUS
     Route: 058
  2. SOLOSTAR [Suspect]
  3. DIAMICRON [Suspect]
     Indication: DIABETES MELLITUS
     Route: 048
     Dates: start: 19900801, end: 20091204
  4. DIAFORMIN [Suspect]
     Indication: DIABETES MELLITUS
     Dosage: 2X1
     Route: 048
     Dates: start: 19900801, end: 20091204

REACTIONS (2)
  - CEREBRAL ARTERY OCCLUSION [None]
  - CEREBROVASCULAR ACCIDENT [None]
